FAERS Safety Report 19968537 (Version 5)
Quarter: 2022Q3

REPORT INFORMATION
  Report Type: Report from Study
  Country: US (occurrence: US)
  Receive Date: 20211019
  Receipt Date: 20220802
  Transmission Date: 20221026
  Serious: Yes (Hospitalization, Other)
  Sender: FDA-Public Use
  Company Number: US-NOVARTISTESTPH-NVSC2021US236945

PATIENT
  Sex: Male

DRUGS (2)
  1. ENTRESTO [Suspect]
     Active Substance: SACUBITRIL\VALSARTAN
     Indication: Product used for unknown indication
     Dosage: UNK UNK, BID
     Route: 048
  2. JARDIANCE [Suspect]
     Active Substance: EMPAGLIFLOZIN
     Indication: Product used for unknown indication
     Dosage: UNK
     Route: 065

REACTIONS (13)
  - Osteomyelitis [Unknown]
  - Joint range of motion decreased [Unknown]
  - Ataxia [Unknown]
  - Balance disorder [Unknown]
  - Malaise [Unknown]
  - Cystitis [Unknown]
  - Urinary tract infection [Recovered/Resolved]
  - Urinary tract infection [Unknown]
  - Sunburn [Unknown]
  - Blister [Unknown]
  - Localised infection [Unknown]
  - Fall [Unknown]
  - Drug ineffective [Unknown]
